FAERS Safety Report 16720370 (Version 1)
Quarter: 2019Q3

REPORT INFORMATION
  Report Type: Spontaneous
  Country: DE (occurrence: DE)
  Receive Date: 20190820
  Receipt Date: 20190820
  Transmission Date: 20191005
  Serious: Yes (Other)
  Sender: FDA-Public Use
  Company Number: DE-PFIZER INC-2019348861

PATIENT
  Age: 45 Year
  Sex: Female

DRUGS (4)
  1. ESTRADIOL. [Suspect]
     Active Substance: ESTRADIOL
     Dosage: 2 MG, UNK
  2. NADROPARIN [Concomitant]
     Active Substance: NADROPARIN
     Dosage: 0.3 ML, 1X/DAY
     Route: 058
  3. PROGESTERON [Concomitant]
     Active Substance: PROGESTERONE
     Dosage: NK MG, NK, GEL
     Route: 067
  4. CHORIONIC GONADOTROPHIN [Suspect]
     Active Substance: CHORIOGONADOTROPIN ALFA
     Dosage: 5000 IU, UNK
     Dates: start: 20180405

REACTIONS (4)
  - Dyspnoea [Unknown]
  - Throat tightness [Unknown]
  - Dizziness [Unknown]
  - Chest discomfort [Unknown]
